FAERS Safety Report 5323216-9 (Version None)
Quarter: 2007Q2

REPORT INFORMATION
  Report Type: 
  Country: None (occurrence: None)
  Receive Date: 20070220
  Receipt Date: 20070112
  Transmission Date: 20071010
  Serious: No
  Sender: FDA-Public Use
  Company Number: WAES 0701USA01878

PATIENT
  Age: 78 Year
  Sex: Female

DRUGS (3)
  1. JANUVIA [Suspect]
     Indication: DIABETES MELLITUS
     Dosage: 50 MG/PO
     Route: 048
     Dates: start: 20061213
  2. DIOVAN [Concomitant]
  3. STATIN (UNSPECIFIED) [Concomitant]

REACTIONS (2)
  - CONSTIPATION [None]
  - HEADACHE [None]
